FAERS Safety Report 5569295-5 (Version None)
Quarter: 2007Q4

REPORT INFORMATION
  Report Type: 
  Country: None (occurrence: None)
  Receive Date: 20071220
  Receipt Date: 20071015
  Transmission Date: 20080405
  Serious: No
  Sender: FDA-Public Use
  Company Number: A0687713A

PATIENT
  Age: 71 Year
  Sex: Female

DRUGS (13)
  1. AVODART [Suspect]
     Dosage: .5MG PER DAY
     Route: 062
     Dates: start: 20050101
  2. CARBAMAZEPINE [Concomitant]
  3. LANTUS [Concomitant]
  4. PRILOSEC [Concomitant]
  5. AVANDIA [Concomitant]
  6. VYTORIN [Concomitant]
  7. PREMARIN [Concomitant]
  8. METFORMIN HCL [Concomitant]
  9. FEXOFENADINE [Concomitant]
  10. VALIUM [Concomitant]
  11. DIOVAN [Concomitant]
  12. VITAMIN [Concomitant]
  13. FISH OIL [Concomitant]

REACTIONS (2)
  - ACCIDENTAL EXPOSURE [None]
  - ALOPECIA [None]
